FAERS Safety Report 8103887-4 (Version None)
Quarter: 2012Q1

REPORT INFORMATION
  Report Type: 
  Country: None (occurrence: None)
  Receive Date: 20120201
  Receipt Date: 20120125
  Transmission Date: 20120608
  Serious: Yes (Other)
  Sender: FDA-Public Use
  Company Number: CY-PFIZER INC-2012021552

PATIENT
  Age: 67 Year
  Sex: Female

DRUGS (4)
  1. ASPIRIN [Concomitant]
  2. PLAVIX [Concomitant]
  3. METOPROLOL TARTRATE [Concomitant]
  4. LIPITOR [Suspect]
     Dosage: 20 MG, UNK

REACTIONS (1)
  - DIABETES MELLITUS [None]
